FAERS Safety Report 10182574 (Version 1)
Quarter: 2014Q2

REPORT INFORMATION
  Report Type: Spontaneous
  Country: US (occurrence: None)
  Receive Date: 20140519
  Receipt Date: 20140519
  Transmission Date: 20141212
  Serious: No
  Sender: FDA-Public Use
  Company Number: None

PATIENT
  Age: 47 Year
  Sex: Female

DRUGS (2)
  1. VENLAFAXINE ORAL [Suspect]
     Indication: DEPRESSION
     Route: 048
  2. VENLAFAXINE ORAL [Suspect]
     Indication: ANXIETY
     Route: 048

REACTIONS (3)
  - Product commingling [None]
  - Drug dispensing error [None]
  - Wrong drug administered [None]
